FAERS Safety Report 7515607-2 (Version None)
Quarter: 2011Q2

REPORT INFORMATION
  Report Type: 
  Country: None (occurrence: None)
  Receive Date: 20110601
  Receipt Date: 20100714
  Transmission Date: 20111010
  Serious: Yes (Other)
  Sender: FDA-Public Use
  Company Number: US-PFIZER INC-2010026969

PATIENT
  Sex: Female
  Weight: 100 kg

DRUGS (3)
  1. CHANTIX [Suspect]
     Indication: SMOKING CESSATION THERAPY
     Dosage: 0.5 MG, DAILY
     Route: 048
     Dates: start: 20090901, end: 20090901
  2. KLONOPIN [Concomitant]
     Dosage: UNK
  3. AMITRIPTYLINE [Concomitant]
     Dosage: UNK

REACTIONS (7)
  - SUICIDAL IDEATION [None]
  - PANIC REACTION [None]
  - MAJOR DEPRESSION [None]
  - CRYING [None]
  - AMNESIA [None]
  - DEPRESSED MOOD [None]
  - FATIGUE [None]
